FAERS Safety Report 4646733-3 (Version None)
Quarter: 2005Q2

REPORT INFORMATION
  Report Type: 
  Country: None (occurrence: None)
  Receive Date: 20050427
  Receipt Date: 20050420
  Transmission Date: 20051028
  Serious: Yes (Disabling)
  Sender: FDA-Public Use
  Company Number: AT-GLAXOSMITHKLINE-B0378910A

PATIENT
  Age: 84 Year
  Sex: Female

DRUGS (2)
  1. AUGMENTIN '125' [Suspect]
     Indication: PNEUMONIA
     Dosage: 2.2G TWICE PER DAY
     Route: 042
     Dates: start: 20050324, end: 20050402
  2. CONCURRENT MEDICATIONS [Concomitant]

REACTIONS (1)
  - DERMATITIS ALLERGIC [None]
